FAERS Safety Report 14083031 (Version 2)
Quarter: 2017Q4

REPORT INFORMATION
  Report Type: Spontaneous
  Country: SE (occurrence: SE)
  Receive Date: 20171013
  Receipt Date: 20171023
  Transmission Date: 20180321
  Serious: Yes (Other)
  Sender: FDA-Public Use
  Company Number: SE-TEVA-814698ISR

PATIENT
  Age: 75 Year
  Sex: Female

DRUGS (4)
  1. LOSARTAN. [Suspect]
     Active Substance: LOSARTAN
     Route: 065
     Dates: start: 2013
  2. OMEPRAZOL [Concomitant]
     Active Substance: OMEPRAZOLE
     Route: 065
     Dates: start: 201710
  3. ENALAPRIL [Suspect]
     Active Substance: ENALAPRIL
     Route: 065
     Dates: start: 2012
  4. METFORMIN ACTAVIS [Suspect]
     Active Substance: METFORMIN HYDROCHLORIDE
     Dosage: 1000 MILLIGRAM DAILY;
     Route: 048
     Dates: start: 201306

REACTIONS (1)
  - Throat cancer [Not Recovered/Not Resolved]

NARRATIVE: CASE EVENT DATE: 201709
